FAERS Safety Report 5805939-8 (Version None)
Quarter: 2008Q3

REPORT INFORMATION
  Report Type: 
  Country: None (occurrence: None)
  Receive Date: 20080710
  Receipt Date: 20080709
  Transmission Date: 20090109
  Serious: Yes (Hospitalization)
  Sender: FDA-Public Use
  Company Number: A0736693A

PATIENT
  Age: 42 Year
  Sex: Female

DRUGS (1)
  1. ALLI [Suspect]
     Indication: WEIGHT LOSS DIET
     Route: 048
     Dates: start: 20080501, end: 20080601

REACTIONS (6)
  - ANXIETY [None]
  - HEADACHE [None]
  - HYPOAESTHESIA [None]
  - MIGRAINE [None]
  - PARAESTHESIA [None]
  - TREMOR [None]
